FAERS Safety Report 19433226 (Version 2)
Quarter: 2021Q2

REPORT INFORMATION
  Report Type: Spontaneous
  Country: US (occurrence: US)
  Receive Date: 20210617
  Receipt Date: 20210621
  Transmission Date: 20210717
  Serious: Yes (Other)
  Sender: FDA-Public Use
  Company Number: US-TEVA-2021-US-1921856

PATIENT
  Sex: Male

DRUGS (1)
  1. AUSTEDO [Suspect]
     Active Substance: DEUTETRABENAZINE
     Indication: TARDIVE DYSKINESIA
     Dosage: 24 MILLIGRAM DAILY;
     Route: 048
     Dates: start: 202001

REACTIONS (6)
  - Anxiety [Unknown]
  - Hypotension [Unknown]
  - Tardive dyskinesia [Unknown]
  - Balance disorder [Unknown]
  - Product dose omission issue [Unknown]
  - Orthostatic hypotension [Unknown]
